FAERS Safety Report 5918307-5 (Version None)
Quarter: 2008Q4

REPORT INFORMATION
  Report Type: 
  Country: None (occurrence: None)
  Receive Date: 20081010
  Receipt Date: 20081005
  Transmission Date: 20090506
  Serious: Yes (Disabling, Other)
  Sender: FDA-Public Use
  Company Number: 20335

PATIENT
  Age: 54 Year
  Sex: Female

DRUGS (5)
  1. MITOXANTRONE [Suspect]
     Indication: ACUTE PROMYELOCYTIC LEUKAEMIA
     Dates: start: 20030101, end: 20050101
  2. MITOXANTRONE [Suspect]
     Indication: MULTIPLE SCLEROSIS
     Dates: start: 20030101, end: 20050101
  3. MITOXANTRONE [Suspect]
     Indication: ACUTE PROMYELOCYTIC LEUKAEMIA
  4. MITOXANTRONE [Suspect]
     Indication: MULTIPLE SCLEROSIS
  5. INTERFERON BETA-1A [Concomitant]

REACTIONS (2)
  - ACUTE PROMYELOCYTIC LEUKAEMIA [None]
  - OPTIC NEURITIS [None]
